FAERS Safety Report 15022405 (Version 1)
Quarter: 2018Q2

REPORT INFORMATION
  Report Type: Spontaneous
  Country: US (occurrence: US)
  Receive Date: 20180601
  Receipt Date: 20180601
  Transmission Date: 20180711
  Serious: No
  Sender: FDA-Public Use
  Company Number: None

PATIENT
  Age: 33 Year
  Sex: Female
  Weight: 148.5 kg

DRUGS (1)
  1. OXYCODONE ACETAMINOPHEN [Suspect]
     Active Substance: ACETAMINOPHEN\OXYCODONE HYDROCHLORIDE
     Indication: PAIN
     Dosage: ?          QUANTITY:1 TABLET(S);?
     Route: 048
     Dates: start: 20180501

REACTIONS (6)
  - Oral mucosal blistering [None]
  - Oral discomfort [None]
  - Abdominal pain upper [None]
  - Headache [None]
  - Product substitution issue [None]
  - Dysgeusia [None]

NARRATIVE: CASE EVENT DATE: 20180510
